FAERS Safety Report 8961754 (Version 1)
Quarter: 2012Q4

REPORT INFORMATION
  Report Type: 
  Country: US (occurrence: US)
  Receive Date: 20121212
  Receipt Date: 20121212
  Transmission Date: 20130627
  Serious: No
  Sender: FDA-Public Use
  Company Number: US-VERTEX PHARMACEUTICALS INC.-2012-025688

PATIENT
  Sex: Female

DRUGS (8)
  1. VX-950 (TELAPREVIR) [Suspect]
     Indication: HEPATITIS C
     Dosage: 750 mg, tid
     Route: 048
  2. RIBAPAK [Concomitant]
     Indication: HEPATITIS C
     Dosage: 600 mg, bid
  3. PEGASYS [Concomitant]
     Indication: HEPATITIS C
     Dosage: 180 ?g, UNK
  4. PHENERGAN                          /00033001/ [Concomitant]
     Dosage: 25 mg, UNK
  5. BENICAR HCT [Concomitant]
  6. VALIUM                             /00017001/ [Concomitant]
     Dosage: 2 mg, UNK
  7. OXYCODONE [Concomitant]
     Dosage: 30 mg, UNK
  8. ANTI DIARRHEA TAB [Concomitant]

REACTIONS (6)
  - Pyrexia [Unknown]
  - Decreased appetite [Unknown]
  - Skin burning sensation [Unknown]
  - Diarrhoea [Unknown]
  - Dysgeusia [Unknown]
  - Nausea [Unknown]
